FAERS Safety Report 18155257 (Version 1)
Quarter: 2020Q3

REPORT INFORMATION
  Report Type: Spontaneous
  Country: US (occurrence: US)
  Receive Date: 20200814
  Receipt Date: 20200814
  Transmission Date: 20201103
  Serious: Yes (Other)
  Sender: FDA-Public Use
  Company Number: None

PATIENT
  Age: 84 Year
  Sex: Female
  Weight: 80 kg

DRUGS (7)
  1. CEFTRIAXONE 1G DAILY [Concomitant]
     Dates: start: 20200811
  2. REMDESIVIR. [Suspect]
     Active Substance: REMDESIVIR
     Indication: COVID-19 PNEUMONIA
     Route: 042
  3. ASPIRIN 81MG DAILY [Concomitant]
     Active Substance: ASPIRIN
     Dates: start: 20200811
  4. INSULIN ASPART SLIDING SCLAE [Concomitant]
     Dates: start: 20200811
  5. ENOXARIN 30MG DAILY [Concomitant]
     Dates: start: 20200811
  6. MOXIFLOXACIN 400MG DAILY [Concomitant]
     Dates: start: 20200811
  7. ATORVASTATIN 80MG DAILY [Concomitant]
     Dates: start: 20200811

REACTIONS (1)
  - Atrial fibrillation [None]

NARRATIVE: CASE EVENT DATE: 20200812
